FAERS Safety Report 14750165 (Version 1)
Quarter: 2018Q2

REPORT INFORMATION
  Report Type: Spontaneous
  Country: US (occurrence: US)
  Receive Date: 20180412
  Receipt Date: 20180412
  Transmission Date: 20180711
  Serious: No
  Sender: FDA-Public Use
  Company Number: US-TEVA-2018-US-878969

PATIENT
  Age: 72 Year
  Sex: Female

DRUGS (1)
  1. AMOXAPINE. [Suspect]
     Active Substance: AMOXAPINE
     Dosage: DOSE STRENGTH:  50; FOR TWENTY YEARS
     Route: 065
     Dates: start: 1998

REACTIONS (9)
  - Thinking abnormal [Unknown]
  - Insomnia [Unknown]
  - Feeding disorder [Unknown]
  - Hyperhidrosis [Unknown]
  - Somnolence [Unknown]
  - Abdominal discomfort [Unknown]
  - Nausea [Unknown]
  - Cold sweat [Unknown]
  - Disturbance in attention [Unknown]

NARRATIVE: CASE EVENT DATE: 201803
